FAERS Safety Report 15416936 (Version 1)
Quarter: 2018Q3

REPORT INFORMATION
  Report Type: Spontaneous
  Country: GB (occurrence: GB)
  Receive Date: 20180924
  Receipt Date: 20180924
  Transmission Date: 20181010
  Serious: Yes (Other)
  Sender: FDA-Public Use
  Company Number: GB-TEVA-2018-GB-957499

PATIENT
  Age: 54 Year
  Sex: Female

DRUGS (1)
  1. DOXAZOSIN [Suspect]
     Active Substance: DOXAZOSIN\DOXAZOSIN MESYLATE
     Indication: HYPERTENSION
     Route: 065
     Dates: start: 20180820, end: 20180902

REACTIONS (7)
  - Dyspnoea [Recovered/Resolved]
  - Asthma [Recovered/Resolved]
  - Chest discomfort [Not Recovered/Not Resolved]
  - Anxiety [Unknown]
  - Arthralgia [Recovered/Resolved]
  - Product substitution issue [Unknown]
  - Hyperhidrosis [Recovered/Resolved]

NARRATIVE: CASE EVENT DATE: 20180828
